FAERS Safety Report 4963957-6 (Version None)
Quarter: 2006Q1

REPORT INFORMATION
  Report Type: 
  Country: None (occurrence: None)
  Receive Date: 20060330
  Receipt Date: 20060322
  Transmission Date: 20060701
  Serious: Yes (Other)
  Sender: FDA-Public Use
  Company Number: 2006040899

PATIENT
  Age: 44 Year
  Sex: Female

DRUGS (9)
  1. NEURONTIN [Suspect]
     Indication: PAIN
     Dates: start: 20031001, end: 20030101
  2. NEURONTIN [Suspect]
     Indication: PAIN IN EXTREMITY
     Dates: start: 20031001, end: 20030101
  3. LYRICA [Suspect]
     Indication: NEURALGIA
     Dosage: 150 MG (75 MG, 2 IN 1 D)
     Dates: start: 20060101
  4. ZOLOFT [Suspect]
     Indication: DEPRESSION
     Dosage: 200 MG (100 MG, 2 IN 1 D)
  5. ULTRACET [Suspect]
     Indication: ILL-DEFINED DISORDER
     Dates: end: 20030101
  6. HYDROCODONE BITARTRATE + ACETAMINOPHEN [Suspect]
     Indication: PAIN
     Dates: start: 20040401
  7. COUMADIN [Concomitant]
  8. ASPIRIN [Concomitant]
  9. PAXIL [Concomitant]

REACTIONS (12)
  - AMNESIA [None]
  - DISTURBANCE IN ATTENTION [None]
  - DRUG INTERACTION [None]
  - FEELING ABNORMAL [None]
  - FORMICATION [None]
  - HALLUCINATION [None]
  - HEADACHE [None]
  - NEUROMA [None]
  - SEDATION [None]
  - SEROMA [None]
  - STOMACH DISCOMFORT [None]
  - WEIGHT INCREASED [None]
